FAERS Safety Report 7896872 (Version 2)
Quarter: 2013Q2

REPORT INFORMATION
  Report Type: Report from Study
  Country: MX (occurrence: MX)
  Receive Date: 20110413
  Receipt Date: 20130528
  Transmission Date: 20140414
  Serious: Yes (Other)
  Sender: FDA-Public Use
  Company Number: PHHY2011MX17249

PATIENT
  Age: 55 Year
  Sex: Female

DRUGS (2)
  1. ACLASTA [Suspect]
     Indication: OSTEOPOROSIS
     Dosage: 1 DF / YEAR
     Route: 042
     Dates: start: 20090303
  2. ACLASTA [Suspect]
     Dosage: UNK
     Route: 042
     Dates: start: 20100305

REACTIONS (7)
  - Hepatic failure [Unknown]
  - Liver disorder [Not Recovered/Not Resolved]
  - Hepatic function abnormal [Recovering/Resolving]
  - Pharyngitis [Recovered/Resolved]
  - Eye infection [Not Recovered/Not Resolved]
  - Blood glucose increased [Recovered/Resolved]
  - Hypersensitivity [Recovered/Resolved]
